FAERS Safety Report 22072114 (Version 1)
Quarter: 2023Q1

REPORT INFORMATION
  Report Type: Other
  Country: None (occurrence: US)
  Receive Date: 20230308
  Receipt Date: 20230308
  Transmission Date: 20230417
  Serious: Yes (Death, Other)
  Sender: FDA-Public Use
  Company Number: US-P+L Developments of Newyork Corporation-2138821

PATIENT
  Age: 36 Year
  Sex: Male

DRUGS (4)
  1. IBUPROFEN [Suspect]
     Active Substance: IBUPROFEN
     Indication: Product used for unknown indication
     Route: 065
  2. AMLODIPINE [Suspect]
     Active Substance: AMLODIPINE BESYLATE
     Route: 065
  3. HYDROCHLOROTHIAZIDE [Suspect]
     Active Substance: HYDROCHLOROTHIAZIDE
     Route: 065
  4. LISINOPRIL [Suspect]
     Active Substance: LISINOPRIL
     Route: 065

REACTIONS (7)
  - Toxicity to various agents [Fatal]
  - Hypotension [Fatal]
  - Respiratory depression [Fatal]
  - Bradycardia [Fatal]
  - Depressed level of consciousness [Fatal]
  - Coma [Fatal]
  - Methaemoglobinaemia [Fatal]
